FAERS Safety Report 8927424 (Version 1)
Quarter: 2012Q4

REPORT INFORMATION
  Report Type: 
  Country: FR (occurrence: FR)
  Receive Date: 20121127
  Receipt Date: 20121127
  Transmission Date: 20130627
  Serious: Yes (Other)
  Sender: FDA-Public Use
  Company Number: FR-TEVA-347219ISR

PATIENT
  Age: 50 None
  Sex: Female

DRUGS (3)
  1. COPAXONE [Suspect]
     Indication: MULTIPLE SCLEROSIS
     Dosage: 20 Milligram Daily;
     Route: 058
     Dates: start: 20120605, end: 20120710
  2. SEROPLEX [Concomitant]
     Indication: AFFECTIVE DISORDER
     Dosage: 5 Milligram Daily;
     Route: 048
     Dates: start: 201106, end: 20121015
  3. STILNOX [Concomitant]
     Indication: INSOMNIA
     Dosage: 5 Milligram Daily; when needed
     Route: 048
     Dates: start: 201101

REACTIONS (10)
  - Physical disability [Recovered/Resolved]
  - Injection site pain [Recovered/Resolved]
  - Injection site anaesthesia [Recovered/Resolved]
  - Injection site erythema [Recovered/Resolved]
  - Injection site induration [Recovered/Resolved]
  - Back pain [Recovered/Resolved]
  - Injection site pruritus [Recovered/Resolved]
  - Injection site discolouration [Recovered/Resolved]
  - Injection site warmth [Recovered/Resolved]
  - Fatigue [Recovered/Resolved]
